FAERS Safety Report 5352502-1 (Version None)
Quarter: 2007Q2

REPORT INFORMATION
  Report Type: 
  Country: None (occurrence: None)
  Receive Date: 20070611
  Receipt Date: 20070529
  Transmission Date: 20071010
  Serious: Yes (Hospitalization)
  Sender: FDA-Public Use
  Company Number: KR-AMGEN-US228273

PATIENT
  Sex: Male

DRUGS (2)
  1. ENBREL [Suspect]
     Indication: ARTHRITIS
     Dosage: 25 MG/VIAL
     Route: 058
  2. METHOTREXATE [Concomitant]

REACTIONS (2)
  - JOINT SWELLING [None]
  - UVEITIS [None]
